FAERS Safety Report 7016163-8 (Version None)
Quarter: 2010Q3

REPORT INFORMATION
  Report Type: 
  Country: None (occurrence: None)
  Receive Date: 20100927
  Receipt Date: 20100914
  Transmission Date: 20110219
  Serious: Yes (Death, Hospitalization)
  Sender: FDA-Public Use
  Company Number: IT-WATSON-2010-12600

PATIENT
  Age: 53 Year
  Sex: Male

DRUGS (1)
  1. FORTAMET [Suspect]
     Indication: DIABETES MELLITUS
     Dosage: 850 MG, TID
     Route: 048

REACTIONS (5)
  - DRUG TOXICITY [None]
  - LACTIC ACIDOSIS [None]
  - MYOCARDIAL INFARCTION [None]
  - PO2 ABNORMAL [None]
  - RENAL FAILURE ACUTE [None]
